FAERS Safety Report 15584328 (Version 1)
Quarter: 2018Q4

REPORT INFORMATION
  Report Type: Spontaneous
  Country: US (occurrence: US)
  Receive Date: 20181031
  Receipt Date: 20181031
  Transmission Date: 20190205
  Serious: Yes (Hospitalization)
  Sender: FDA-Public Use
  Company Number: None

PATIENT
  Age: 66 Year
  Sex: Male
  Weight: 92.53 kg

DRUGS (12)
  1. YESCARTA [Suspect]
     Active Substance: AXICABTAGENE CILOLEUCEL
     Indication: DIFFUSE LARGE B-CELL LYMPHOMA
     Dosage: ?          OTHER DOSE:2X10^8TH CAR-T CEL;OTHER ROUTE:IV FUSION?
     Dates: start: 20180723
  2. KEPPRA [Concomitant]
     Active Substance: LEVETIRACETAM
  3. FLUDARABINE [Concomitant]
     Active Substance: FLUDARABINE PHOSPHATE
  4. DRISDOL [Concomitant]
     Active Substance: ERGOCALCIFEROL
  5. CYCLOPHOSPHAMIDE. [Concomitant]
     Active Substance: CYCLOPHOSPHAMIDE
  6. DEXAMETHASONE. [Concomitant]
     Active Substance: DEXAMETHASONE
  7. FAMVIR [Concomitant]
     Active Substance: FAMCICLOVIR
  8. NOXAFIL [Concomitant]
     Active Substance: POSACONAZOLE
  9. PRILOSEC [Concomitant]
     Active Substance: OMEPRAZOLE MAGNESIUM
  10. COMPAZINE [Concomitant]
     Active Substance: PROCHLORPERAZINE MALEATE
  11. LEVAQUIN [Concomitant]
     Active Substance: LEVOFLOXACIN
  12. ZOFRAN [Concomitant]
     Active Substance: ONDANSETRON HYDROCHLORIDE

REACTIONS (2)
  - Asthenia [None]
  - Toxicity to various agents [None]

NARRATIVE: CASE EVENT DATE: 20180825
